FAERS Safety Report 21451711 (Version 1)
Quarter: 2022Q4

REPORT INFORMATION
  Report Type: Spontaneous
  Country: FI (occurrence: FI)
  Receive Date: 20221013
  Receipt Date: 20221013
  Transmission Date: 20230113
  Serious: Yes (Other)
  Sender: FDA-Public Use
  Company Number: None

PATIENT
  Age: 47 Year
  Sex: Male

DRUGS (1)
  1. AJOVY [Suspect]
     Active Substance: FREMANEZUMAB-VFRM
     Indication: Migraine
     Dosage: 225,MG,MONTHLY, THERAPY END DATE : NASK
     Dates: start: 20220216

REACTIONS (6)
  - Transient ischaemic attack [Recovered/Resolved]
  - Hemianopia [Recovered/Resolved]
  - Injection site pruritus [Recovered/Resolved]
  - Migraine [Recovered/Resolved]
  - Injection site oedema [Recovered/Resolved]
  - Visual impairment [Recovered/Resolved]

NARRATIVE: CASE EVENT DATE: 20220825
